FAERS Safety Report 15942596 (Version 1)
Quarter: 2019Q1

REPORT INFORMATION
  Report Type: Spontaneous
  Country: FR (occurrence: FR)
  Receive Date: 20190210
  Receipt Date: 20190210
  Transmission Date: 20190417
  Serious: Yes (Hospitalization)
  Sender: FDA-Public Use
  Company Number: PHHY2019FR028353

PATIENT
  Age: 80 Year
  Sex: Female
  Weight: 44.2 kg

DRUGS (6)
  1. DEPAKINE [Suspect]
     Active Substance: VALPROATE SODIUM
     Indication: ABNORMAL BEHAVIOUR
     Dosage: 1100 MG, QD ((200MG/ML) 300MG-300MG-500MG)
     Route: 048
     Dates: start: 20181003, end: 20190107
  2. LOXAPAC [Suspect]
     Active Substance: LOXAPINE
     Indication: ABNORMAL BEHAVIOUR
     Dosage: 7 GTT, QD ((25MG/ML)-2-2-3 (GOUTTES))
     Route: 048
     Dates: start: 20190102, end: 20190107
  3. MOVICOL [Suspect]
     Active Substance: POLYETHYLENE GLYCOL 3350\POTASSIUM CHLORIDE\SODIUM BICARBONATE\SODIUM CHLORIDE
     Indication: CONSTIPATION
     Dosage: 1 DF, QD
     Route: 048
     Dates: start: 20181003
  4. MIANSERINE ARROW [Suspect]
     Active Substance: MIANSERIN HYDROCHLORIDE
     Indication: DEPRESSION
     Dosage: 90 MG, QD (1-0-2)
     Route: 048
     Dates: start: 20181003, end: 20190107
  5. LOSARTAN POTASSIUM. [Suspect]
     Active Substance: LOSARTAN POTASSIUM
     Indication: HYPERTENSION
     Dosage: 50 MG, QD (1-0-0)
     Route: 048
     Dates: start: 20181003
  6. MELATONINE [Suspect]
     Active Substance: MELATONIN
     Indication: SOMNOLENCE
     Dosage: 5 MG, QD (0-0-1)
     Route: 048
     Dates: start: 20181003

REACTIONS (1)
  - Sedation complication [Recovered/Resolved]

NARRATIVE: CASE EVENT DATE: 20190107
